FAERS Safety Report 4384345-X (Version None)
Quarter: 2004Q2

REPORT INFORMATION
  Report Type: 
  Country: None (occurrence: None)
  Receive Date: 20040621
  Receipt Date: 20040610
  Transmission Date: 20050107
  Serious: Yes (Death)
  Sender: FDA-Public Use
  Company Number: 207108

PATIENT
  Age: 67 Year
  Sex: Male

DRUGS (5)
  1. ACTILYSE(ALTEPLASE, ALTEPLASE) PWDR + SOLVENT,INFUSION SOLN [Suspect]
     Indication: CEREBRAL INFARCTION
     Dosage: 6.5 MG, IV BOLUS  : 56.5 MG, INTRAVENOUS
     Route: 040
     Dates: start: 20040517, end: 20040517
  2. ACTILYSE(ALTEPLASE, ALTEPLASE) PWDR + SOLVENT,INFUSION SOLN [Suspect]
     Indication: CEREBRAL INFARCTION
     Dosage: 6.5 MG, IV BOLUS  : 56.5 MG, INTRAVENOUS
     Route: 040
     Dates: start: 20040517, end: 20040517
  3. PRIMPERAN ELIXIR [Concomitant]
  4. HYDROCHLOROTHIAZIDE [Concomitant]
  5. ENALAPRIL MALEATE [Concomitant]

REACTIONS (2)
  - BRAIN OEDEMA [None]
  - COMA [None]
